FAERS Safety Report 7322860-7 (Version None)
Quarter: 2011Q1

REPORT INFORMATION
  Report Type: 
  Country: None (occurrence: None)
  Receive Date: 20110214
  Receipt Date: 20110204
  Transmission Date: 20110831
  Serious: Yes (Other)
  Sender: FDA-Public Use
  Company Number: 2011SP003590

PATIENT
  Sex: Female

DRUGS (1)
  1. MARVELON (DESOGESTREL/ETHINYLESTRADIOL/00570801/ [Suspect]
     Indication: PRODUCT USED FOR UNKNOWN INDICATION

REACTIONS (3)
  - CYSTITIS INTERSTITIAL [None]
  - SUICIDAL IDEATION [None]
  - PAIN [None]
